FAERS Safety Report 6072489-6 (Version None)
Quarter: 2009Q1

REPORT INFORMATION
  Report Type: 
  Country: None (occurrence: None)
  Receive Date: 20090210
  Receipt Date: 20090204
  Transmission Date: 20090719
  Serious: Yes (Hospitalization)
  Sender: FDA-Public Use
  Company Number: FR-ROCHE-612930

PATIENT
  Sex: Female
  Weight: 54 kg

DRUGS (14)
  1. RIVOTRIL [Suspect]
     Indication: DRUG USE FOR UNKNOWN INDICATION
     Route: 048
     Dates: start: 20080930
  2. LEXOMIL [Suspect]
     Indication: DRUG USE FOR UNKNOWN INDICATION
     Route: 048
     Dates: start: 20070101
  3. LAROXYL [Suspect]
     Indication: DRUG USE FOR UNKNOWN INDICATION
     Dosage: TDD REPORTED AS 15 DOSES DAILY
     Route: 048
     Dates: start: 20070101
  4. VASTAREL [Suspect]
     Indication: DRUG USE FOR UNKNOWN INDICATION
     Route: 065
     Dates: start: 20070101, end: 20081013
  5. EFFERALGAN [Suspect]
     Indication: DRUG USE FOR UNKNOWN INDICATION
     Route: 065
     Dates: start: 20070101, end: 20081013
  6. ATACAND [Suspect]
     Indication: DRUG USE FOR UNKNOWN INDICATION
     Route: 048
     Dates: start: 20070101, end: 20081013
  7. NOZINAN [Suspect]
     Indication: DRUG USE FOR UNKNOWN INDICATION
     Route: 048
     Dates: start: 19780101, end: 20080930
  8. SEROPLEX [Suspect]
     Indication: DRUG USE FOR UNKNOWN INDICATION
     Route: 065
     Dates: start: 20080801
  9. OMEPRAZOLE [Concomitant]
     Dates: start: 20070101
  10. ACTONEL [Concomitant]
     Dates: start: 20070101
  11. CAL-D3 [Concomitant]
     Dates: start: 20070101
  12. PREVISCAN [Concomitant]
     Dates: start: 20071201
  13. SYMBICORT [Concomitant]
     Dates: start: 20070101
  14. SINEMET [Concomitant]
     Dates: start: 20080930, end: 20081011

REACTIONS (3)
  - EXTRAPYRAMIDAL DISORDER [None]
  - FALL [None]
  - ORTHOSTATIC HYPOTENSION [None]
